FAERS Safety Report 9987953 (Version 2)
Quarter: 2014Q1

REPORT INFORMATION
  Report Type: Spontaneous
  Country: FR (occurrence: FR)
  Receive Date: 20140307
  Receipt Date: 20140307
  Transmission Date: 20141002
  Serious: Yes (Hospitalization)
  Sender: FDA-Public Use
  Company Number: FR-ABBVIE-13X-056-1133664-00

PATIENT
  Sex: Female

DRUGS (11)
  1. DEPAKINE CHRONO [Suspect]
     Indication: EPILEPSY
     Dosage: 1500MILLIGRAM(S); DAILY
     Dates: end: 20110601
  2. SULFARLEM [Suspect]
     Indication: PRODUCT USED FOR UNKNOWN INDICATION
     Dosage: D DOSAGE FORM; DAILY
     Dates: end: 20120126
  3. LEPTICUR [Suspect]
     Indication: PRODUCT USED FOR UNKNOWN INDICATION
     Dosage: 10 MILLIGRAM(S); DAILY
  4. IMOVANE [Suspect]
     Indication: SLEEP DISORDER
     Dosage: 7.5 MILLIGRAM(S); DAILY
     Dates: start: 20110601
  5. NOCTRAN [Suspect]
     Indication: PRODUCT USED FOR UNKNOWN INDICATION
  6. VALIUM [Suspect]
     Indication: PRODUCT USED FOR UNKNOWN INDICATION
     Dosage: 20 MILLIGRAM(S); DAILY
  7. RIVOTRIL [Suspect]
     Indication: PRODUCT USED FOR UNKNOWN INDICATION
     Dosage: 6 MILLIGRAM(S); DAILY
  8. LOXAPAC [Suspect]
     Indication: PRODUCT USED FOR UNKNOWN INDICATION
     Dosage: 25 MILLIGRAM(S); DAILY
     Dates: start: 201105, end: 20110601
  9. RISPERDAL CONSTA [Suspect]
     Indication: PRODUCT USED FOR UNKNOWN INDICATION
     Dates: end: 20110527
  10. HALDOL DECANOAS [Suspect]
     Indication: SCHIZOPHRENIA
     Dosage: 4 DOSAGE FORM; DAILY
     Dates: start: 20110601
  11. KEPPRA [Suspect]
     Indication: PRODUCT USED FOR UNKNOWN INDICATION
     Dates: start: 20110601

REACTIONS (2)
  - Mental disorder [Unknown]
  - Treatment noncompliance [Unknown]
